FAERS Safety Report 14412058 (Version 1)
Quarter: 2018Q1

REPORT INFORMATION
  Report Type: Other
  Country: IT (occurrence: IT)
  Receive Date: 20180119
  Receipt Date: 20180119
  Transmission Date: 20180509
  Serious: Yes (Death, Life-Threatening, Other)
  Sender: FDA-Public Use
  Company Number: IT-GLENMARK PHARMACEUTICALS-2017GMK030804

PATIENT

DRUGS (4)
  1. BUDESONIDE. [Suspect]
     Active Substance: BUDESONIDE
     Indication: PRIMARY BILIARY CHOLANGITIS
     Dosage: UNK
     Route: 065
  2. URSODEOXYCHOLIC ACID [Suspect]
     Active Substance: URSODIOL
     Indication: PRIMARY BILIARY CHOLANGITIS
     Dosage: 15 MG/KG, UNK
     Route: 065
  3. COLCHICINE. [Suspect]
     Active Substance: COLCHICINE
     Indication: PRIMARY BILIARY CHOLANGITIS
     Dosage: UNK
     Route: 065
  4. FENOFIBRATE. [Suspect]
     Active Substance: FENOFIBRATE
     Indication: PRODUCT USED FOR UNKNOWN INDICATION
     Dosage: UNK
     Route: 065

REACTIONS (12)
  - Cardiovascular disorder [Fatal]
  - Ascites [Unknown]
  - Liver transplant [Unknown]
  - Drug ineffective [Unknown]
  - Disease progression [Fatal]
  - Pruritus [Unknown]
  - Product use in unapproved indication [Unknown]
  - Varices oesophageal [Unknown]
  - Jaundice cholestatic [Unknown]
  - Hepatic encephalopathy [Unknown]
  - Chronic hepatic failure [Fatal]
  - Portal hypertension [Unknown]
